FAERS Safety Report 8964922 (Version 1)
Quarter: 2012Q4

REPORT INFORMATION
  Report Type: 
  Country: AU (occurrence: AU)
  Receive Date: 20121214
  Receipt Date: 20121214
  Transmission Date: 20130627
  Serious: Yes (Other)
  Sender: FDA-Public Use
  Company Number: AU-PERRIGO-12AU010394

PATIENT
  Age: 20 Year
  Sex: Male

DRUGS (1)
  1. MESALAMINE [Suspect]
     Indication: COLITIS ULCERATIVE
     Dosage: 1.5 g, bid
     Route: 065

REACTIONS (9)
  - Myopericarditis [Recovered/Resolved]
  - Chest pain [Recovering/Resolving]
  - Cough [Unknown]
  - Pyrexia [Unknown]
  - Neutrophilia [Unknown]
  - C-reactive protein increased [Unknown]
  - Electrocardiogram ST segment elevation [Recovered/Resolved]
  - Systolic dysfunction [Recovered/Resolved]
  - Pericardial effusion [Unknown]
